FAERS Safety Report 24360403 (Version 1)
Quarter: 2024Q3

REPORT INFORMATION
  Report Type: Spontaneous
  Country: JP (occurrence: JP)
  Receive Date: 20240925
  Receipt Date: 20240925
  Transmission Date: 20241016
  Serious: Yes (Death, Other)
  Sender: MERCK
  Company Number: JP-MSD-M2024-31328

PATIENT
  Age: 9 Decade
  Sex: Male

DRUGS (2)
  1. ZERBAXA [Suspect]
     Active Substance: CEFTOLOZANE SULFATE\TAZOBACTAM SODIUM
     Indication: Pseudomonas infection
     Dosage: 1.5 GRAM, TID
     Route: 041
  2. METRONIDAZOLE [Concomitant]
     Active Substance: METRONIDAZOLE
     Dosage: UNK
     Route: 042

REACTIONS (5)
  - General physical health deterioration [Fatal]
  - Pseudomonas infection [Unknown]
  - Large intestine perforation [Unknown]
  - Drug resistance [Unknown]
  - Drug ineffective [Unknown]
